FAERS Safety Report 17025868 (Version 6)
Quarter: 2020Q2

REPORT INFORMATION
  Report Type: Spontaneous
  Country: US (occurrence: US)
  Receive Date: 20191113
  Receipt Date: 20200427
  Transmission Date: 20200713
  Serious: No
  Sender: FDA-Public Use
  Company Number: US-PFIZER INC-2019487565

PATIENT
  Age: 63 Year
  Sex: Female
  Weight: 58 kg

DRUGS (10)
  1. IBRANCE [Suspect]
     Active Substance: PALBOCICLIB
     Dosage: 100 MG, CYCLIC (TAKE 1 CAPSULE DAILY FOR 21 DAYS)
     Route: 048
     Dates: start: 201911
  2. TRIAMCINOLONE ACETONIDE. [Concomitant]
     Active Substance: TRIAMCINOLONE ACETONIDE
     Dosage: UNK
  3. IBRANCE [Suspect]
     Active Substance: PALBOCICLIB
     Dosage: 100 MG, CYCLIC (TAKE 1 CAPSULE DAILY FOR 21 DAYS)
     Route: 048
     Dates: start: 20191027
  4. VITAMIN B-6 [Concomitant]
     Active Substance: PYRIDOXINE
     Dosage: UNK
  5. LUMIGAN [Concomitant]
     Active Substance: BIMATOPROST
     Dosage: UNK
  6. ONDANSETRON [Concomitant]
     Active Substance: ONDANSETRON
     Dosage: UNK
  7. GABAPENTIN. [Concomitant]
     Active Substance: GABAPENTIN
     Dosage: UNK
  8. IBRANCE [Suspect]
     Active Substance: PALBOCICLIB
     Indication: BREAST CANCER FEMALE
     Dosage: 125 MG, CYCLIC, (DAILY FOR 21 DAYS ON, 7 OFF)
     Route: 048
     Dates: start: 20191027
  9. ANASTROZOLE. [Concomitant]
     Active Substance: ANASTROZOLE
     Dosage: UNK
     Dates: start: 201910
  10. FLUCONAZOLE. [Concomitant]
     Active Substance: FLUCONAZOLE
     Dosage: UNK

REACTIONS (5)
  - Platelet count increased [Unknown]
  - Hair growth rate abnormal [Not Recovered/Not Resolved]
  - Stomatitis [Recovered/Resolved]
  - Rhinorrhoea [Not Recovered/Not Resolved]
  - Blood count abnormal [Not Recovered/Not Resolved]

NARRATIVE: CASE EVENT DATE: 201912
